FAERS Safety Report 17111580 (Version 2)
Quarter: 2019Q4

REPORT INFORMATION
  Report Type: Spontaneous
  Country: US (occurrence: US)
  Receive Date: 20191204
  Receipt Date: 20191213
  Transmission Date: 20200122
  Serious: No
  Sender: FDA-Public Use
  Company Number: US-JNJFOC-20191203573

PATIENT
  Age: 63 Year
  Sex: Male

DRUGS (3)
  1. TREMFYA [Suspect]
     Active Substance: GUSELKUMAB
     Indication: PSORIASIS
     Route: 065
  2. PRAVASTATIN. [Concomitant]
     Active Substance: PRAVASTATIN
     Indication: BLOOD CHOLESTEROL
  3. BABY ASPIRIN [Concomitant]
     Active Substance: ASPIRIN

REACTIONS (3)
  - Product dose omission [Not Recovered/Not Resolved]
  - Product label issue [Unknown]
  - Product storage error [Unknown]

NARRATIVE: CASE EVENT DATE: 20191127
